FAERS Safety Report 20007510 (Version 1)
Quarter: 2021Q4

REPORT INFORMATION
  Report Type: Spontaneous
  Country: RO (occurrence: RO)
  Receive Date: 20211029
  Receipt Date: 20211029
  Transmission Date: 20220303
  Serious: Yes (Other)
  Sender: FDA-Public Use
  Company Number: RO-SUN PHARMACEUTICAL INDUSTRIES LTD-2021RR-315674

PATIENT
  Age: 27 Year
  Sex: Male

DRUGS (5)
  1. DESLORATADINE [Suspect]
     Active Substance: DESLORATADINE
     Indication: Asthma
     Dosage: 5 MILLIGRAM
     Route: 065
  2. OLANZAPINE [Suspect]
     Active Substance: OLANZAPINE
     Indication: Panic attack
     Dosage: 5 MILLIGRAM
     Route: 065
  3. PAROXETINE [Suspect]
     Active Substance: PAROXETINE
     Indication: Panic attack
     Dosage: 30 MILLIGRAM
     Route: 065
  4. ALBUTEROL [Suspect]
     Active Substance: ALBUTEROL
     Indication: Asthma
     Dosage: 100 MILLIGRAM, DAILY, 1X DAILY
     Route: 065
  5. FLUTICASONE PROPIONATE\SALMETEROL XINAFOATE [Suspect]
     Active Substance: FLUTICASONE PROPIONATE\SALMETEROL XINAFOATE
     Indication: Asthma
     Dosage: 50MG/250MG (1X DAILY)
     Route: 065

REACTIONS (1)
  - Condition aggravated [Unknown]
